FAERS Safety Report 5350884-8 (Version None)
Quarter: 2007Q2

REPORT INFORMATION
  Report Type: 
  Country: None (occurrence: None)
  Receive Date: 20070608
  Receipt Date: 20070604
  Transmission Date: 20071010
  Serious: Yes (Hospitalization)
  Sender: FDA-Public Use
  Company Number: B0474204A

PATIENT
  Age: 67 Year
  Sex: Female
  Weight: 65 kg

DRUGS (3)
  1. TOPOTECAN HYDROCHLORIDE [Suspect]
     Indication: OVARIAN CANCER
     Route: 042
  2. GEMCITABINE [Suspect]
     Dosage: 1000MG SEE DOSAGE TEXT
     Route: 042
     Dates: start: 20070430, end: 20070507
  3. CARBOPLATIN [Suspect]
     Route: 042
     Dates: start: 20070430, end: 20070430

REACTIONS (2)
  - PLEURAL EFFUSION [None]
  - THROMBOCYTOPENIA [None]
